FAERS Safety Report 8037867-4 (Version None)
Quarter: 2012Q1

REPORT INFORMATION
  Report Type: 
  Country: None (occurrence: None)
  Receive Date: 20120111
  Receipt Date: 20120106
  Transmission Date: 20120608
  Serious: Yes (Other)
  Sender: FDA-Public Use
  Company Number: PHHY2012GB001335

PATIENT
  Age: 64 Year
  Sex: Male
  Weight: 112 kg

DRUGS (7)
  1. EZETIMIBE [Concomitant]
     Dosage: 10 MG, QD
  2. ASPIRIN [Concomitant]
     Dosage: 75 MG, QD
  3. LANSOPRAZOLE [Concomitant]
     Dosage: 15 MG, QD
  4. SILDENAFIL [Concomitant]
     Dosage: 50 MG, UNK
  5. DOXAZOSIN MESYLATE [Suspect]
     Indication: HYPERTENSION
     Dosage: 4 MG, UNK
     Route: 048
  6. ADIZEM-XL [Concomitant]
     Dosage: 300 MG, QD
  7. IRBESARTAN [Concomitant]
     Dosage: 300 MG, UNK

REACTIONS (1)
  - HYPOGLYCAEMIA [None]
